FAERS Safety Report 19067732 (Version 1)
Quarter: 2021Q1

REPORT INFORMATION
  Report Type: Spontaneous
  Country: TR (occurrence: TR)
  Receive Date: 20210329
  Receipt Date: 20210329
  Transmission Date: 20210420
  Serious: Yes (Other)
  Sender: FDA-Public Use
  Company Number: TR-PFIZER INC-2021322040

PATIENT
  Age: 48 Year
  Sex: Female

DRUGS (5)
  1. XELJANZ [Suspect]
     Active Substance: TOFACITINIB CITRATE
  2. METHOTREXATE SODIUM. [Concomitant]
     Active Substance: METHOTREXATE SODIUM
  3. BISOPROLOL [Concomitant]
     Active Substance: BISOPROLOL
  4. DESAL [DESLORATADINE] [Concomitant]
  5. COVERSYL [PERINDOPRIL ARGININE] [Concomitant]
     Active Substance: PERINDOPRIL ARGININE

REACTIONS (2)
  - Embolism [Unknown]
  - Deep vein thrombosis [Unknown]
